FAERS Safety Report 22208592 (Version 1)
Quarter: 2023Q2

REPORT INFORMATION
  Report Type: Spontaneous
  Country: CN (occurrence: CN)
  Receive Date: 20230413
  Receipt Date: 20230413
  Transmission Date: 20230722
  Serious: Yes (Life-Threatening)
  Sender: FDA-Public Use
  Company Number: CN-FreseniusKabi-FK202304616

PATIENT
  Age: 3 Year
  Sex: Male
  Weight: 13.50 kg

DRUGS (42)
  1. EGG PHOSPHOLIPIDS\GLYCERIN\MEDIUM-CHAIN TRIGLYCERIDES\SOYBEAN OIL [Suspect]
     Active Substance: EGG PHOSPHOLIPIDS\GLYCERIN\MEDIUM-CHAIN TRIGLYCERIDES\SOYBEAN OIL
     Indication: Retroperitoneal cancer
     Route: 041
     Dates: start: 20230304, end: 20230304
  2. EGG PHOSPHOLIPIDS\GLYCERIN\MEDIUM-CHAIN TRIGLYCERIDES\SOYBEAN OIL [Suspect]
     Active Substance: EGG PHOSPHOLIPIDS\GLYCERIN\MEDIUM-CHAIN TRIGLYCERIDES\SOYBEAN OIL
     Indication: Neuroblastoma
  3. EGG PHOSPHOLIPIDS\GLYCERIN\MEDIUM-CHAIN TRIGLYCERIDES\SOYBEAN OIL [Suspect]
     Active Substance: EGG PHOSPHOLIPIDS\GLYCERIN\MEDIUM-CHAIN TRIGLYCERIDES\SOYBEAN OIL
     Indication: Metastases to bone
  4. EGG PHOSPHOLIPIDS\GLYCERIN\MEDIUM-CHAIN TRIGLYCERIDES\SOYBEAN OIL [Suspect]
     Active Substance: EGG PHOSPHOLIPIDS\GLYCERIN\MEDIUM-CHAIN TRIGLYCERIDES\SOYBEAN OIL
     Indication: Metastases to bone marrow
  5. EGG PHOSPHOLIPIDS\GLYCERIN\MEDIUM-CHAIN TRIGLYCERIDES\SOYBEAN OIL [Suspect]
     Active Substance: EGG PHOSPHOLIPIDS\GLYCERIN\MEDIUM-CHAIN TRIGLYCERIDES\SOYBEAN OIL
     Indication: Metastases to lymph nodes
  6. EGG PHOSPHOLIPIDS\GLYCERIN\MEDIUM-CHAIN TRIGLYCERIDES\SOYBEAN OIL [Suspect]
     Active Substance: EGG PHOSPHOLIPIDS\GLYCERIN\MEDIUM-CHAIN TRIGLYCERIDES\SOYBEAN OIL
     Indication: Parenteral nutrition
  7. VITAMINS [Concomitant]
     Active Substance: VITAMINS
     Indication: Retroperitoneal cancer
     Route: 041
     Dates: start: 20230304, end: 20230304
  8. VITAMINS [Concomitant]
     Active Substance: VITAMINS
     Indication: Neuroblastoma
  9. VITAMINS [Concomitant]
     Active Substance: VITAMINS
     Indication: Metastases to bone
  10. VITAMINS [Concomitant]
     Active Substance: VITAMINS
     Indication: Metastases to bone marrow
  11. VITAMINS [Concomitant]
     Active Substance: VITAMINS
     Indication: Metastases to lymph nodes
  12. VITAMINS [Concomitant]
     Active Substance: VITAMINS
     Indication: Parenteral nutrition
  13. Pediatric Compound Amino Acid Injection (18AA-?) [Concomitant]
     Indication: Retroperitoneal cancer
     Route: 041
     Dates: start: 20230304, end: 20230304
  14. Pediatric Compound Amino Acid Injection (18AA-?) [Concomitant]
     Indication: Neuroblastoma
  15. Pediatric Compound Amino Acid Injection (18AA-?) [Concomitant]
     Indication: Metastases to bone
  16. Pediatric Compound Amino Acid Injection (18AA-?) [Concomitant]
     Indication: Metastases to bone marrow
  17. Pediatric Compound Amino Acid Injection (18AA-?) [Concomitant]
     Indication: Metastases to lymph nodes
  18. Pediatric Compound Amino Acid Injection (18AA-?) [Concomitant]
     Indication: Parenteral nutrition
  19. POTASSIUM CHLORIDE [Concomitant]
     Active Substance: POTASSIUM CHLORIDE
     Indication: Retroperitoneal cancer
     Route: 041
     Dates: start: 20230304, end: 20230304
  20. POTASSIUM CHLORIDE [Concomitant]
     Active Substance: POTASSIUM CHLORIDE
     Indication: Neuroblastoma
  21. POTASSIUM CHLORIDE [Concomitant]
     Active Substance: POTASSIUM CHLORIDE
     Indication: Metastases to bone
  22. POTASSIUM CHLORIDE [Concomitant]
     Active Substance: POTASSIUM CHLORIDE
     Indication: Metastases to bone marrow
  23. POTASSIUM CHLORIDE [Concomitant]
     Active Substance: POTASSIUM CHLORIDE
     Indication: Metastases to lymph nodes
  24. POTASSIUM CHLORIDE [Concomitant]
     Active Substance: POTASSIUM CHLORIDE
     Indication: Parenteral nutrition
  25. Fat-soluble Vitamin for Injection (I) [Concomitant]
     Indication: Retroperitoneal cancer
     Route: 041
     Dates: start: 20230304, end: 20230304
  26. Fat-soluble Vitamin for Injection (I) [Concomitant]
     Indication: Neuroblastoma
  27. Fat-soluble Vitamin for Injection (I) [Concomitant]
     Indication: Metastases to bone
  28. Fat-soluble Vitamin for Injection (I) [Concomitant]
     Indication: Metastases to bone marrow
  29. Fat-soluble Vitamin for Injection (I) [Concomitant]
     Indication: Metastases to lymph nodes
  30. Fat-soluble Vitamin for Injection (I) [Concomitant]
     Indication: Parenteral nutrition
  31. Concentrated Sodium Chloride Injection [Concomitant]
     Indication: Retroperitoneal cancer
     Route: 041
     Dates: start: 20230304, end: 20230304
  32. Concentrated Sodium Chloride Injection [Concomitant]
     Indication: Neuroblastoma
  33. Concentrated Sodium Chloride Injection [Concomitant]
     Indication: Metastases to bone
  34. Concentrated Sodium Chloride Injection [Concomitant]
     Indication: Metastases to bone marrow
  35. Concentrated Sodium Chloride Injection [Concomitant]
     Indication: Metastases to lymph nodes
  36. Concentrated Sodium Chloride Injection [Concomitant]
     Indication: Parenteral nutrition
  37. DEXTROSE [Concomitant]
     Active Substance: DEXTROSE\DEXTROSE MONOHYDRATE
     Indication: Retroperitoneal cancer
     Route: 041
     Dates: start: 20230304, end: 20230304
  38. DEXTROSE [Concomitant]
     Active Substance: DEXTROSE\DEXTROSE MONOHYDRATE
     Indication: Neuroblastoma
  39. DEXTROSE [Concomitant]
     Active Substance: DEXTROSE\DEXTROSE MONOHYDRATE
     Indication: Metastases to bone
  40. DEXTROSE [Concomitant]
     Active Substance: DEXTROSE\DEXTROSE MONOHYDRATE
     Indication: Metastases to bone marrow
  41. DEXTROSE [Concomitant]
     Active Substance: DEXTROSE\DEXTROSE MONOHYDRATE
     Indication: Metastases to lymph nodes
  42. DEXTROSE [Concomitant]
     Active Substance: DEXTROSE\DEXTROSE MONOHYDRATE
     Indication: Parenteral nutrition

REACTIONS (1)
  - Anaphylactic shock [Recovered/Resolved]

NARRATIVE: CASE EVENT DATE: 20230304
